FAERS Safety Report 9366198 (Version 2)
Quarter: 2013Q3

REPORT INFORMATION
  Report Type: Spontaneous
  Country: US (occurrence: None)
  Receive Date: 20130620
  Receipt Date: 20130702
  Transmission Date: 20140515
  Serious: Yes (Other)
  Sender: FDA-Public Use
  Company Number: 2013P1007258

PATIENT
  Age: 67 Year
  Sex: Female
  Weight: 58.97 kg

DRUGS (7)
  1. DEXAMETHASONE SODIUM PHOSPHATE [Suspect]
     Indication: SWELLING
     Route: 030
     Dates: start: 20130330, end: 20130330
  2. DOXYCYCLINE HYCLATE CAPSULES [Suspect]
     Indication: CELLULITIS
     Route: 048
     Dates: start: 201304
  3. CLINDAMYCIN [Suspect]
     Indication: CELLULITIS
  4. AMOXICILLIN [Concomitant]
  5. LEVOXYL [Concomitant]
  6. PROZAC [Concomitant]
  7. CEFAZOLIN [Concomitant]

REACTIONS (3)
  - Pyrexia [None]
  - Cellulitis [None]
  - Impaired work ability [None]
